FAERS Safety Report 7597725-6 (Version None)
Quarter: 2011Q3

REPORT INFORMATION
  Report Type: 
  Country: None (occurrence: None)
  Receive Date: 20110708
  Receipt Date: 20110701
  Transmission Date: 20111222
  Serious: Yes (Other)
  Sender: FDA-Public Use
  Company Number: US-GLAXOSMITHKLINE-A0935248A

PATIENT
  Age: 43 Year
  Sex: Male
  Weight: 96.4 kg

DRUGS (6)
  1. ATENOLOL [Concomitant]
     Indication: HYPERTENSION
     Dosage: 50MG TWICE PER DAY
     Route: 065
  2. XANAX [Suspect]
     Indication: PANIC ATTACK
     Dosage: .25MG UNKNOWN
     Route: 065
  3. ZANTAC [Suspect]
     Indication: ABDOMINAL PAIN UPPER
     Route: 065
  4. LISINOPRIL AND HYDROCHLOROTHIAZIDE [Concomitant]
     Indication: HYPERTENSION
     Route: 065
  5. ALPRAZOLAM [Suspect]
     Indication: PANIC ATTACK
     Dosage: .25MG UNKNOWN
     Route: 065
  6. OXYCODONE HCL [Suspect]
     Indication: PAIN
     Route: 065

REACTIONS (14)
  - HALLUCINATION, AUDITORY [None]
  - MALAISE [None]
  - HALLUCINATION [None]
  - DISABILITY [None]
  - ASTHMA [None]
  - AGGRESSION [None]
  - LIMB OPERATION [None]
  - FEELING ABNORMAL [None]
  - ABDOMINAL PAIN UPPER [None]
  - PANIC ATTACK [None]
  - PAIN [None]
  - FATIGUE [None]
  - BURNING SENSATION [None]
  - MIGRAINE [None]
